FAERS Safety Report 6723716-0 (Version None)
Quarter: 2010Q2

REPORT INFORMATION
  Report Type: 
  Country: None (occurrence: None)
  Receive Date: 20100513
  Receipt Date: 20100504
  Transmission Date: 20101027
  Serious: Yes (Death, Other)
  Sender: FDA-Public Use
  Company Number: IT-WATSON-2010-06151

PATIENT
  Age: 8 Month
  Sex: Female

DRUGS (2)
  1. CARBOPLATIN [Suspect]
     Indication: NEPHROBLASTOMA
     Dosage: 5.5 MG/KG, DAYS 1,2,3
     Route: 042
  2. ETOPOSIDE [Suspect]
     Indication: NEPHROBLASTOMA
     Dosage: 4.5 MG/KG, DAYS 1, 2, 3
     Route: 042

REACTIONS (6)
  - DISSEMINATED INTRAVASCULAR COAGULATION [None]
  - DRUG TOXICITY [None]
  - FUNGAL INFECTION [None]
  - PANCYTOPENIA [None]
  - PYREXIA [None]
  - VENOOCCLUSIVE DISEASE [None]
